FAERS Safety Report 5505941-X (Version None)
Quarter: 2007Q4

REPORT INFORMATION
  Report Type: 
  Country: None (occurrence: None)
  Receive Date: 20071105
  Receipt Date: 20071030
  Transmission Date: 20080405
  Serious: Yes (Other)
  Sender: FDA-Public Use
  Company Number: PHEH2007US14229

PATIENT
  Age: 74 Year
  Sex: Female
  Weight: 41.723 kg

DRUGS (10)
  1. FERROUS SULFATE TAB [Concomitant]
  2. POTASSIUM CHLORIDE [Concomitant]
  3. NIFEDIPINE [Concomitant]
  4. TARCEVA [Concomitant]
  5. MULTIVITAMINS AND IRON [Concomitant]
  6. CALCIUM [Concomitant]
  7. MEGACE [Concomitant]
  8. AUGMENTIN /UNK/ [Concomitant]
     Dosage: ON SUNDAYS
  9. CARBOPLATIN W/GEMCITABINE HYDROCHLORIDE [Concomitant]
     Indication: LUNG NEOPLASM MALIGNANT
     Dates: start: 20050523, end: 20050726
  10. ZOMETA [Suspect]
     Indication: METASTASES TO BONE
     Dosage: UNK, UNK
     Dates: start: 20050531, end: 20070726

REACTIONS (4)
  - BIOPSY [None]
  - OSTEONECROSIS [None]
  - TOOTH EXTRACTION [None]
  - TOOTHACHE [None]
